FAERS Safety Report 18722415 (Version 1)
Quarter: 2021Q1

REPORT INFORMATION
  Report Type: Spontaneous
  Country: JP (occurrence: JP)
  Receive Date: 20210111
  Receipt Date: 20210111
  Transmission Date: 20210419
  Serious: Yes (Other)
  Sender: FDA-Public Use
  Company Number: JP-ROCHE-2742515

PATIENT
  Sex: Female

DRUGS (2)
  1. BONALON [Concomitant]
     Active Substance: ALENDRONATE SODIUM
  2. BONVIVA [Suspect]
     Active Substance: IBANDRONATE SODIUM
     Indication: PRODUCT USED FOR UNKNOWN INDICATION
     Route: 042
     Dates: start: 202007, end: 202009

REACTIONS (8)
  - Musculoskeletal stiffness [Unknown]
  - Abdominal discomfort [Unknown]
  - Back pain [Unknown]
  - Gingival disorder [Unknown]
  - Blood pressure increased [Unknown]
  - Decreased appetite [Unknown]
  - Myalgia [Unknown]
  - Weight decreased [Unknown]

NARRATIVE: CASE EVENT DATE: 202009
